FAERS Safety Report 5317112-0 (Version None)
Quarter: 2007Q2

REPORT INFORMATION
  Report Type: 
  Country: None (occurrence: None)
  Receive Date: 20070504
  Receipt Date: 20070427
  Transmission Date: 20071010
  Serious: Yes (Hospitalization)
  Sender: FDA-Public Use
  Company Number: PT-AMGEN-UK209510

PATIENT

DRUGS (1)
  1. CINACALCET [Suspect]
     Indication: HYPERPARATHYROIDISM SECONDARY
     Route: 065

REACTIONS (15)
  - ACUTE CORONARY SYNDROME [None]
  - ANAEMIA [None]
  - ANEURYSM ARTERIOVENOUS [None]
  - ARTERIOVENOUS GRAFT THROMBOSIS [None]
  - CATHETER SITE HAEMORRHAGE [None]
  - CATHETER SITE INFECTION [None]
  - GASTRIC HAEMORRHAGE [None]
  - GRAFT COMPLICATION [None]
  - KNEE ARTHROPLASTY [None]
  - MYOCARDIAL INFARCTION [None]
  - PROSTATECTOMY [None]
  - RENAL EMBOLISM [None]
  - SEPSIS [None]
  - SURGERY [None]
  - TRANSIENT ISCHAEMIC ATTACK [None]
